FAERS Safety Report 21710658 (Version 1)
Quarter: 2022Q4

REPORT INFORMATION
  Report Type: Spontaneous
  Country: IT (occurrence: IT)
  Receive Date: 20221212
  Receipt Date: 20221212
  Transmission Date: 20230112
  Serious: Yes (Life-Threatening)
  Sender: FDA-Public Use
  Company Number: None

PATIENT
  Age: 87 Year
  Sex: Female
  Weight: 65 kg

DRUGS (2)
  1. XARELTO [Suspect]
     Active Substance: RIVAROXABAN
     Indication: Atrial fibrillation
     Dosage: ND
     Route: 048
     Dates: start: 2020, end: 20221126
  2. SOTALOL HYDROCHLORIDE [Concomitant]
     Active Substance: SOTALOL HYDROCHLORIDE
     Indication: Tachyarrhythmia
     Dosage: 40 MG*2/DIE
     Route: 048
     Dates: start: 2020

REACTIONS (2)
  - Cerebral haemorrhage [Unknown]
  - Hemiplegia [Unknown]

NARRATIVE: CASE EVENT DATE: 20221126
